FAERS Safety Report 5219213-4 (Version None)
Quarter: 2007Q1

REPORT INFORMATION
  Report Type: 
  Country: None (occurrence: None)
  Receive Date: 20070122
  Receipt Date: 20070108
  Transmission Date: 20070707
  Serious: Yes (Hospitalization)
  Sender: FDA-Public Use
  Company Number: HQWYE292115DEC06

PATIENT
  Age: 83 Year
  Sex: Male

DRUGS (6)
  1. CORDARONE [Suspect]
     Indication: ATRIAL FIBRILLATION
     Dosage: SEE IMAGE
     Route: 048
     Dates: end: 20030130
  2. CORDARONE [Suspect]
     Indication: ATRIAL FIBRILLATION
     Dosage: SEE IMAGE
     Route: 048
     Dates: start: 20051201, end: 20061101
  3. . [Concomitant]
  4. ISOPTIN [Concomitant]
  5. BRONCHODUAL (FENOTEROL HYDROBROMIDE/IPRATROPIUM BROMIDE), [Concomitant]
  6. PREVISCAN (FLUINDIONE) [Concomitant]

REACTIONS (5)
  - ATRIAL FIBRILLATION [None]
  - ENTEROBACTER PNEUMONIA [None]
  - LOBAR PNEUMONIA [None]
  - POLYCYTHAEMIA [None]
  - PULMONARY FIBROSIS [None]
